FAERS Safety Report 24613517 (Version 1)
Quarter: 2024Q4

REPORT INFORMATION
  Report Type: Other
  Country: HU (occurrence: HU)
  Receive Date: 20241113
  Receipt Date: 20241113
  Transmission Date: 20250115
  Serious: Yes (Other)
  Sender: EMD SERONO INC
  Company Number: HU-SUN PHARMACEUTICAL INDUSTRIES LTD-2017R1-144461

PATIENT
  Age: 27 Year
  Sex: Female
  Weight: 93 kg

DRUGS (7)
  1. METFORMIN [Suspect]
     Active Substance: METFORMIN HYDROCHLORIDE
     Indication: Type 2 diabetes mellitus
     Route: 065
  2. LANTUS [Suspect]
     Active Substance: INSULIN GLARGINE
     Indication: Type 2 diabetes mellitus
     Dosage: 60 E (UNITS)
     Route: 065
  3. LANTUS [Suspect]
     Active Substance: INSULIN GLARGINE
     Dosage: 54 E (UNITS)
     Route: 065
  4. FOLIC ACID\INOSITOL [Suspect]
     Active Substance: FOLIC ACID\INOSITOL
     Indication: Polycystic ovarian syndrome
     Route: 065
  5. INOSITOL [Suspect]
     Active Substance: INOSITOL
     Indication: Product used for unknown indication
     Route: 065
  6. NOVORAPID [Suspect]
     Active Substance: INSULIN ASPART
     Indication: Type 2 diabetes mellitus
     Dosage: AT A DOSAGE OF 15-15-15 E NOVORAPID
  7. NOVORAPID [Suspect]
     Active Substance: INSULIN ASPART
     Dosage: DOSE 18 E (UNITS)

REACTIONS (4)
  - Amniorrhexis [Unknown]
  - Premature rupture of membranes [Recovered/Resolved]
  - Abortion induced [Unknown]
  - Exposure during pregnancy [Unknown]
